FAERS Safety Report 9570838 (Version 1)
Quarter: 2013Q4

REPORT INFORMATION
  Report Type: Other
  Country: NZ (occurrence: NZ)
  Receive Date: 20131001
  Receipt Date: 20131001
  Transmission Date: 20140711
  Serious: Yes (Other)
  Sender: FDA-Public Use
  Company Number: NZ-BRISTOL-MYERS SQUIBB COMPANY-19440353

PATIENT
  Age: 78 Year
  Sex: 0

DRUGS (2)
  1. WARFARIN SODIUM [Suspect]
     Indication: ATRIAL FIBRILLATION
  2. BENZBROMARONE [Interacting]
     Indication: GOUT

REACTIONS (3)
  - Contusion [Unknown]
  - International normalised ratio increased [Unknown]
  - Drug interaction [Unknown]
